FAERS Safety Report 5758679-8 (Version None)
Quarter: 2008Q2

REPORT INFORMATION
  Report Type: 
  Country: None (occurrence: None)
  Receive Date: 20080507
  Receipt Date: 20070706
  Transmission Date: 20081010
  Serious: Yes (Hospitalization)
  Sender: FDA-Public Use
  Company Number: 235571K07USA

PATIENT
  Age: 44 Year
  Sex: Female

DRUGS (5)
  1. REBIF [Suspect]
     Indication: MULTIPLE SCLEROSIS
     Dosage: 44 MCG, 3 IN 1 WEEKS, SUBCUTANEOUS
     Route: 058
     Dates: start: 20061026, end: 20070601
  2. NEURONTIN [Concomitant]
  3. PROVIGIL [Concomitant]
  4. INDOMETHACIN [Concomitant]
  5. CYMBALTA [Concomitant]

REACTIONS (11)
  - ANTIBODY TEST POSITIVE [None]
  - BLOOD GLUCOSE ABNORMAL [None]
  - BLOOD GLUCOSE DECREASED [None]
  - CENTRAL NERVOUS SYSTEM LESION [None]
  - FALL [None]
  - HEADACHE [None]
  - HEMIPLEGIA [None]
  - HYPOAESTHESIA [None]
  - HYPOAESTHESIA FACIAL [None]
  - MULTIPLE SCLEROSIS RELAPSE [None]
  - VERTIGO [None]
